FAERS Safety Report 10078483 (Version 1)
Quarter: 2014Q2

REPORT INFORMATION
  Report Type: Spontaneous
  Country: US (occurrence: None)
  Receive Date: 20140411
  Receipt Date: 20140411
  Transmission Date: 20141212
  Serious: Yes (Hospitalization)
  Sender: FDA-Public Use
  Company Number: US-ZYDUS-002875

PATIENT
  Age: 70 Year
  Sex: Male

DRUGS (2)
  1. DONEPEZIL [Suspect]
  2. QUETIAPINE (QUETIAPINE) [Concomitant]

REACTIONS (2)
  - Mania [None]
  - Psychomotor hyperactivity [None]
